FAERS Safety Report 10040802 (Version 1)
Quarter: 2014Q1

REPORT INFORMATION
  Report Type: Spontaneous
  Country: CZ (occurrence: CZ)
  Receive Date: 20140327
  Receipt Date: 20140327
  Transmission Date: 20141002
  Serious: Yes (Other)
  Sender: FDA-Public Use
  Company Number: CZ-BAYER-2014-045306

PATIENT
  Age: 63 Year
  Sex: Male

DRUGS (2)
  1. NEXAVAR [Suspect]
     Indication: RENAL CANCER
     Dosage: 400 MG, BID
     Route: 048
     Dates: start: 201208, end: 201210
  2. NEXAVAR [Suspect]
     Indication: RENAL CANCER
     Dosage: DAILY DOSE 800 MG

REACTIONS (3)
  - Hypertension [Recovered/Resolved]
  - Polycythaemia [Recovered/Resolved]
  - Flushing [Recovered/Resolved]
